FAERS Safety Report 5847725-9 (Version None)
Quarter: 2008Q3

REPORT INFORMATION
  Report Type: 
  Country: None (occurrence: None)
  Receive Date: 20080818
  Receipt Date: 20080808
  Transmission Date: 20090109
  Serious: Yes (Death)
  Sender: FDA-Public Use
  Company Number: US-ROCHE-580097

PATIENT
  Sex: Female
  Weight: 47.6 kg

DRUGS (1)
  1. CAPECITABINE [Suspect]
     Indication: COLORECTAL CANCER
     Dosage: DOSE REPORTED AS: 2X 500 MG BID
     Route: 065
     Dates: start: 20070917

REACTIONS (1)
  - DEATH [None]
